FAERS Safety Report 7319442-X (Version None)
Quarter: 2011Q1

REPORT INFORMATION
  Report Type: 
  Country: None (occurrence: None)
  Receive Date: 20110228
  Receipt Date: 20100326
  Transmission Date: 20110831
  Serious: No
  Sender: FDA-Public Use
  Company Number: A0852178A

PATIENT
  Sex: Female

DRUGS (2)
  1. LEXAPRO [Concomitant]
  2. LAMICTAL [Suspect]
     Indication: BIPOLAR DISORDER
     Dosage: 300MG PER DAY
     Route: 048

REACTIONS (3)
  - PAIN [None]
  - OEDEMA PERIPHERAL [None]
  - JOINT SWELLING [None]
